FAERS Safety Report 7231601-3 (Version None)
Quarter: 2011Q1

REPORT INFORMATION
  Report Type: 
  Country: None (occurrence: None)
  Receive Date: 20110107
  Receipt Date: 20101227
  Transmission Date: 20110831
  Serious: Yes (Hospitalization)
  Sender: FDA-Public Use
  Company Number: B0692109A

PATIENT
  Age: 19 Year
  Sex: Female

DRUGS (2)
  1. SALBUTAMOL SULPHATE INHALER (GENERIC) (ALBUTEROL SULFATE) [Suspect]
     Indication: ASTHMA
     Dosage: INHALED
     Route: 055
  2. FOOD (FORMULATION UNKNOWN  (FOOD) [Suspect]
     Dosage: ORAL
     Route: 048

REACTIONS (6)
  - PERICARDIAL EFFUSION [None]
  - ATRIAL FIBRILLATION [None]
  - DRUG ABUSE [None]
  - PALPITATIONS [None]
  - ELECTROCARDIOGRAM PR SHORTENED [None]
  - MITRAL VALVE INCOMPETENCE [None]
